FAERS Safety Report 5027750-0 (Version None)
Quarter: 2006Q2

REPORT INFORMATION
  Report Type: 
  Country: None (occurrence: None)
  Receive Date: 20060609
  Receipt Date: 20060529
  Transmission Date: 20061013
  Serious: Yes (Other)
  Sender: FDA-Public Use
  Company Number: 2006034927

PATIENT
  Age: 42 Year
  Sex: Female
  Weight: 55 kg

DRUGS (1)
  1. DOSTINEX [Suspect]
     Indication: PROLACTINOMA
     Dosage: 0.5 MG (0.5 MG, 1 IN 1 WK), ORAL
     Route: 048
     Dates: start: 20051212, end: 20060302

REACTIONS (4)
  - COLITIS ISCHAEMIC [None]
  - COLITIS ULCERATIVE [None]
  - ENTEROCOLITIS INFECTIOUS [None]
  - RECTAL HAEMORRHAGE [None]
